FAERS Safety Report 9281534 (Version 4)
Quarter: 2013Q4

REPORT INFORMATION
  Report Type: Report from Study
  Country: US (occurrence: US)
  Receive Date: 20130509
  Receipt Date: 20131031
  Transmission Date: 20140711
  Serious: No
  Sender: FDA-Public Use
  Company Number: US-VERTEX PHARMACEUTICALS INC-2013-005857

PATIENT
  Age: 18 Year
  Sex: Male

DRUGS (3)
  1. VX-770 [Suspect]
     Indication: CYSTIC FIBROSIS
     Dosage: 150 MG, BID
     Route: 048
     Dates: start: 20120301
  2. VX-770 [Suspect]
     Dosage: 150 MG, BID
     Route: 048
  3. URSO [Concomitant]

REACTIONS (3)
  - Portal hypertension [Unknown]
  - Splenomegaly [Unknown]
  - Malaise [Not Recovered/Not Resolved]
